FAERS Safety Report 6618411-2 (Version None)
Quarter: 2010Q1

REPORT INFORMATION
  Report Type: 
  Country: None (occurrence: None)
  Receive Date: 20100308
  Receipt Date: 20100301
  Transmission Date: 20100710
  Serious: Yes (Other)
  Sender: FDA-Public Use
  Company Number: B0636887A

PATIENT
  Sex: Female

DRUGS (4)
  1. SERETIDE [Suspect]
     Indication: DRUG USE FOR UNKNOWN INDICATION
     Route: 055
  2. NATRILIX SR [Concomitant]
     Route: 065
     Dates: start: 20090501
  3. OMEPRAZOLE [Concomitant]
     Route: 065
     Dates: start: 20090301
  4. BRICANYL [Concomitant]
     Route: 065
     Dates: start: 20090901

REACTIONS (2)
  - DIZZINESS [None]
  - PRODUCT QUALITY ISSUE [None]
